FAERS Safety Report 24199870 (Version 5)
Quarter: 2025Q1

REPORT INFORMATION
  Report Type: Spontaneous
  Country: US (occurrence: US)
  Receive Date: 20240812
  Receipt Date: 20250202
  Transmission Date: 20250408
  Serious: Yes (Other)
  Sender: AMGEN
  Company Number: US-AMGEN-USASP2024157551

PATIENT
  Age: 52 Year
  Sex: Female
  Weight: 63.5 kg

DRUGS (18)
  1. TEPEZZA [Suspect]
     Active Substance: TEPROTUMUMAB-TRBW
     Indication: Endocrine ophthalmopathy
     Route: 042
     Dates: start: 20210612
  2. TEPEZZA [Suspect]
     Active Substance: TEPROTUMUMAB-TRBW
     Route: 042
     Dates: start: 20210703
  3. TEPEZZA [Suspect]
     Active Substance: TEPROTUMUMAB-TRBW
     Route: 042
     Dates: start: 2021
  4. TEPEZZA [Suspect]
     Active Substance: TEPROTUMUMAB-TRBW
     Dosage: 20 MILLIGRAM/KILOGRAM, Q3WK
     Route: 042
     Dates: start: 2021
  5. TEPEZZA [Suspect]
     Active Substance: TEPROTUMUMAB-TRBW
     Route: 042
     Dates: start: 20211120, end: 20211120
  6. LEVOTHYROXINE [Concomitant]
     Active Substance: LEVOTHYROXINE
     Route: 048
  7. SYSTANE (HYPROMELLOSE 2910 (4000 MPA.S)) [Concomitant]
     Active Substance: HYPROMELLOSE 2910 (4000 MPA.S)
     Indication: Dry eye
     Route: 065
  8. Artificial tears [Concomitant]
     Route: 065
  9. ERYTHROMYCIN [Concomitant]
     Active Substance: ERYTHROMYCIN
     Dosage: 5 MILLIGRAM PER GRAM, BID ((0.5 %) EYE OINTMENT OPHTHALMIC (EYE) APPLY A SMALL AMOUNT TO BOTH UPPER
     Route: 047
     Dates: start: 20240710
  10. TOBRADEX [Concomitant]
     Active Substance: DEXAMETHASONE\TOBRAMYCIN
     Dosage: 1 DROP, BID (0.3 %.0.1 % EYE DROPS,SUSPENSION OPHTHALMIC (EYE))
     Route: 047
  11. MEDROL [Concomitant]
     Active Substance: METHYLPREDNISOLONE
     Route: 048
  12. SYNTHROID [Concomitant]
     Active Substance: LEVOTHYROXINE SODIUM
     Route: 065
  13. SYNTHROID [Concomitant]
     Active Substance: LEVOTHYROXINE SODIUM
     Dosage: 88 MICROGRAM, QD
     Route: 048
  14. VITAMIN E [Concomitant]
     Active Substance: .ALPHA.-TOCOPHEROL
     Route: 065
  15. VITAMIN D [Concomitant]
     Active Substance: VITAMIN D NOS
     Route: 065
  16. MAGNESIUM [Concomitant]
     Active Substance: MAGNESIUM
     Route: 065
  17. FISH OIL [Concomitant]
     Active Substance: FISH OIL
     Route: 065
  18. RETINOL [Concomitant]
     Active Substance: RETINOL
     Dosage: UNK, 3 TIMES/WK
     Route: 065

REACTIONS (13)
  - Neoplasm skin [Unknown]
  - Deafness neurosensory [Not Recovered/Not Resolved]
  - Emotional distress [Not Recovered/Not Resolved]
  - Anxiety [Not Recovered/Not Resolved]
  - Product use complaint [Unknown]
  - Ocular discomfort [Unknown]
  - Photophobia [Unknown]
  - Vision blurred [Unknown]
  - Dermatochalasis [Unknown]
  - Asthenia [Unknown]
  - Ear congestion [Unknown]
  - Eustachian tube disorder [Unknown]
  - Rhinitis [Unknown]

NARRATIVE: CASE EVENT DATE: 20210101
